FAERS Safety Report 6216877-3 (Version None)
Quarter: 2009Q2

REPORT INFORMATION
  Report Type: 
  Country: None (occurrence: None)
  Receive Date: 20090603
  Receipt Date: 20090603
  Transmission Date: 20091009
  Serious: Yes (Other)
  Sender: FDA-Public Use
  Company Number: None

PATIENT
  Age: 46 Year
  Sex: Male
  Weight: 102.0593 kg

DRUGS (1)
  1. HYDROCODONE BITARTRATE AND ACETAMINOPHEN [Suspect]
     Indication: INTERVERTEBRAL DISC DEGENERATION
     Dosage: 10/325 ONE TO TWO PO Q 4-6 HOURS ORAL 047
     Route: 048
     Dates: start: 20090430

REACTIONS (3)
  - DYSPEPSIA [None]
  - MALAISE [None]
  - PRODUCT SUBSTITUTION ISSUE [None]
